FAERS Safety Report 25987608 (Version 1)
Quarter: 2025Q4

REPORT INFORMATION
  Report Type: Spontaneous
  Country: EU (occurrence: EU)
  Receive Date: 20251103
  Receipt Date: 20251103
  Transmission Date: 20260118
  Serious: Yes (Other)
  Sender: HIKMA
  Company Number: None

PATIENT
  Age: 68 Year
  Sex: Male
  Weight: 82 kg

DRUGS (6)
  1. CLINDAMYCIN HYDROCHLORIDE [Suspect]
     Active Substance: CLINDAMYCIN HYDROCHLORIDE
     Indication: Endocarditis staphylococcal
     Dosage: 1800 MILLIGRAM, QD
     Route: 042
     Dates: start: 20250415, end: 20250416
  2. CEFAZOLIN [Suspect]
     Active Substance: CEFAZOLIN
     Indication: Endocarditis staphylococcal
     Dosage: 6 GRAM, QD
     Route: 042
     Dates: start: 20250411, end: 20250424
  3. FOSFOMYCIN [Suspect]
     Active Substance: FOSFOMYCIN
     Indication: Endocarditis staphylococcal
     Dosage: 8 GRAM, QD
     Route: 042
     Dates: start: 20250411, end: 20250414
  4. LINEZOLID [Suspect]
     Active Substance: LINEZOLID
     Indication: Endocarditis staphylococcal
     Dosage: UNK
     Route: 042
     Dates: start: 20250416, end: 20250417
  5. MEROPENEM ANHYDROUS [Suspect]
     Active Substance: MEROPENEM ANHYDROUS
     Indication: Endocarditis staphylococcal
     Dosage: UNK
     Route: 042
     Dates: start: 20250416, end: 20250417
  6. RIFAMPIN [Suspect]
     Active Substance: RIFAMPIN
     Indication: Endocarditis staphylococcal
     Dosage: 900 MILLIGRAM, QD
     Route: 042
     Dates: start: 20250417, end: 20250424

REACTIONS (1)
  - Drug reaction with eosinophilia and systemic symptoms [Recovered/Resolved]

NARRATIVE: CASE EVENT DATE: 20250521
